FAERS Safety Report 23220205 (Version 3)
Quarter: 2023Q4

REPORT INFORMATION
  Report Type: Spontaneous
  Country: JP (occurrence: JP)
  Receive Date: 20231123
  Receipt Date: 20231208
  Transmission Date: 20240109
  Serious: Yes (Hospitalization, Other)
  Sender: FDA-Public Use
  Company Number: JP-MSD-2210JPN001369J

PATIENT
  Age: 71 Year
  Sex: Female

DRUGS (3)
  1. KEYTRUDA [Suspect]
     Active Substance: PEMBROLIZUMAB
     Indication: Gingival cancer
     Dosage: 200 MILLIGRAM, Q3W
     Route: 041
  2. FLUOROURACIL [Concomitant]
     Active Substance: FLUOROURACIL
     Indication: Gingival cancer
     Dosage: 1000 MILLIGRAM/SQ. METER, 4 TIMES IN 3 WEEKS
     Route: 042
  3. CISPLATIN [Concomitant]
     Active Substance: CISPLATIN
     Indication: Gingival cancer
     Dosage: 100 MILLIGRAM/SQ. METER, Q3W
     Route: 042

REACTIONS (10)
  - Fanconi syndrome acquired [Recovered/Resolved]
  - Renal tubular acidosis [Recovered/Resolved]
  - Pyrexia [Recovered/Resolved]
  - Hypertension [Recovered/Resolved]
  - Tubulointerstitial nephritis [Recovered/Resolved]
  - Immune-mediated encephalitis [Recovered/Resolved]
  - Malignant neoplasm progression [Unknown]
  - Malaise [Recovered/Resolved]
  - Protein urine [Not Recovered/Not Resolved]
  - Treatment failure [Unknown]
